FAERS Safety Report 4347698-4 (Version None)
Quarter: 2004Q1

REPORT INFORMATION
  Report Type: 
  Country: None (occurrence: None)
  Receive Date: 20040325
  Receipt Date: 20040105
  Transmission Date: 20041129
  Serious: No
  Sender: FDA-Public Use
  Company Number: USA031254539

PATIENT
  Age: 68 Year
  Sex: Female

DRUGS (4)
  1. FORTEO [Suspect]
     Indication: OSTEOPOROSIS
     Dates: start: 20031101
  2. PAIN MEDICATION [Concomitant]
  3. NEXIUM [Concomitant]
  4. KADIAN [Concomitant]

REACTIONS (3)
  - ARTHRALGIA [None]
  - DYSPEPSIA [None]
  - WEIGHT INCREASED [None]
